FAERS Safety Report 17052899 (Version 1)
Quarter: 2019Q4

REPORT INFORMATION
  Report Type: Spontaneous
  Country: US (occurrence: US)
  Receive Date: 20191120
  Receipt Date: 20191120
  Transmission Date: 20200122
  Serious: Yes (Other)
  Sender: FDA-Public Use
  Company Number: None

PATIENT
  Age: 25 Year
  Sex: Male
  Weight: 87.75 kg

DRUGS (3)
  1. GABAPENTIN. [Concomitant]
     Active Substance: GABAPENTIN
  2. LEVOFLOXACIN. [Suspect]
     Active Substance: LEVOFLOXACIN
     Indication: CHLAMYDIAL INFECTION
     Dosage: ?          QUANTITY:7 TABLET(S);?
     Route: 048
     Dates: start: 20190720, end: 20191018
  3. ADULT MULTIVITAMIN [Concomitant]

REACTIONS (6)
  - Suicidal ideation [None]
  - Depression [None]
  - Peripheral coldness [None]
  - Anxiety [None]
  - Pain in extremity [None]
  - Feeling hot [None]

NARRATIVE: CASE EVENT DATE: 20190722
